FAERS Safety Report 5888255-8 (Version None)
Quarter: 2008Q3

REPORT INFORMATION
  Report Type: 
  Country: None (occurrence: None)
  Receive Date: 20080918
  Receipt Date: 20080910
  Transmission Date: 20090109
  Serious: Yes (Hospitalization)
  Sender: FDA-Public Use
  Company Number: IT-ASTRAZENECA-2008SE04279

PATIENT
  Sex: Male

DRUGS (1)
  1. LIDOCAINE [Suspect]

REACTIONS (3)
  - FACE OEDEMA [None]
  - GENERALISED ERYTHEMA [None]
  - SYNCOPE [None]
